FAERS Safety Report 6166656-0 (Version None)
Quarter: 2009Q2

REPORT INFORMATION
  Report Type: 
  Country: None (occurrence: None)
  Receive Date: 20090424
  Receipt Date: 20090414
  Transmission Date: 20091009
  Serious: Yes (Other)
  Sender: FDA-Public Use
  Company Number: GB-ELI_LILLY_AND_COMPANY-GB200904003303

PATIENT
  Age: 12 Year
  Sex: Male

DRUGS (2)
  1. STRATTERA [Suspect]
     Dosage: 50 MG, UNKNOWN
     Route: 065
  2. STRATTERA [Suspect]
     Dosage: 25 MG X 2, UNKNOWN
     Route: 065

REACTIONS (4)
  - HALLUCINATION, AUDITORY [None]
  - MALAISE [None]
  - SYNCOPE [None]
  - WEIGHT DECREASED [None]
